FAERS Safety Report 8364772-6 (Version None)
Quarter: 2012Q2

REPORT INFORMATION
  Report Type: 
  Country: None (occurrence: None)
  Receive Date: 20120516
  Receipt Date: 20120503
  Transmission Date: 20120825
  Serious: Yes (Death, Hospitalization)
  Sender: FDA-Public Use
  Company Number: US-ACTELION-A-US2012-63400

PATIENT

DRUGS (18)
  1. ALDACTONE [Concomitant]
  2. NEXIUM [Concomitant]
  3. ZINC SULFATE [Concomitant]
  4. CALCIUM [Concomitant]
  5. FEXOFENADINE [Concomitant]
  6. EPOPROSTENOL SODIUM [Suspect]
     Dosage: 11.8 NG/KG, PER MIN
     Route: 042
     Dates: end: 20120511
  7. COMBIVENT [Concomitant]
  8. ZOFRAN [Concomitant]
  9. EPOPROSTENOL SODIUM [Suspect]
     Indication: PULMONARY ARTERIAL HYPERTENSION
     Dosage: 10 NG/KG, PER MIN
     Route: 042
     Dates: start: 20110929
  10. FLEXERIL [Concomitant]
  11. LASIX [Concomitant]
  12. POTASSIUM CHLORIDE [Concomitant]
  13. ZOLOFT [Concomitant]
  14. VIAGRA [Concomitant]
  15. TRAMADOL HYDROCHLORIDE [Concomitant]
  16. VITAMIN A [Concomitant]
  17. CEPHULAC [Concomitant]
  18. MULTI-VITAMIN [Concomitant]

REACTIONS (17)
  - HEPATORENAL SYNDROME [None]
  - ANXIETY [None]
  - DIARRHOEA [None]
  - RENAL FAILURE ACUTE [None]
  - ASTHENIA [None]
  - FALL [None]
  - DEATH [None]
  - MALNUTRITION [None]
  - DECREASED APPETITE [None]
  - CACHEXIA [None]
  - WEIGHT DECREASED [None]
  - DEHYDRATION [None]
  - PULMONARY ARTERIAL HYPERTENSION [None]
  - MALAISE [None]
  - BEDRIDDEN [None]
  - CHRONIC HEPATIC FAILURE [None]
  - FAILURE TO THRIVE [None]
